FAERS Safety Report 17359425 (Version 6)
Quarter: 2022Q4

REPORT INFORMATION
  Report Type: Report from Study
  Country: TR (occurrence: None)
  Receive Date: 20200203
  Receipt Date: 20221118
  Transmission Date: 20230112
  Serious: Yes (Hospitalization)
  Sender: FDA-Public Use
  Company Number: TR-ROCHE-2524659

PATIENT
  Age: 62 Year
  Sex: Male
  Weight: 59 kg

DRUGS (13)
  1. ATEZOLIZUMAB [Suspect]
     Active Substance: ATEZOLIZUMAB
     Indication: Bladder transitional cell carcinoma metastatic
     Dosage: DATE OF MOST RECENT DOSE OF ATEZOLIZUMAB TO AE ONSET ON 23/DEC/2019 AND 29/NOV/2019
     Route: 041
     Dates: start: 20180704
  2. GEMCITABINE [Suspect]
     Active Substance: GEMCITABINE
     Indication: Bladder transitional cell carcinoma metastatic
     Dosage: DAY 1 AND DAY 8 OF EACH 21 DAY CYCLE.?DATE OF  MOST RECENT DOSE 1520 MG/M2 OF GEMCITABINE PRIOR TO A
     Route: 042
     Dates: start: 20180704
  3. CARBOPLATIN [Suspect]
     Active Substance: CARBOPLATIN
     Indication: Bladder transitional cell carcinoma metastatic
     Dosage: UNIT DOSE 4.5MG/ML*MIN ON DAY 1 OF EACH 21 DAY CYCLE.?DATE OF MOST RECENT DOSE 300 MG OF CARBOPLATIN
     Route: 042
     Dates: start: 20180704
  4. METOPROLOL [Concomitant]
     Active Substance: METOPROLOL
     Indication: Cardiac failure
     Route: 048
     Dates: start: 20180810
  5. ATORVASTATIN [Concomitant]
     Active Substance: ATORVASTATIN
     Indication: Cardiac failure
     Route: 048
     Dates: start: 20180810
  6. PANTOPRAZOLE SODIUM [Concomitant]
     Active Substance: PANTOPRAZOLE SODIUM
     Indication: Cardiac failure
     Route: 048
     Dates: start: 20180810
  7. ASPIRIN [Concomitant]
     Active Substance: ASPIRIN
     Indication: Cardiac failure
     Route: 048
     Dates: start: 20180810
  8. NITROFURANTOIN [Concomitant]
     Active Substance: NITROFURANTOIN
     Indication: Urinary tract infection
     Route: 048
     Dates: start: 20191108
  9. CIPROFLOXACIN [Concomitant]
     Active Substance: CIPROFLOXACIN
     Indication: Urinary tract infection
     Route: 048
     Dates: start: 20191108
  10. ACETAMINOPHEN\BUTYLSCOPOLAMINE BROMIDE [Concomitant]
     Active Substance: ACETAMINOPHEN\BUTYLSCOPOLAMINE BROMIDE
     Indication: Urinary tract infection
     Route: 048
     Dates: start: 20191108
  11. FILGRASTIM [Concomitant]
     Active Substance: FILGRASTIM
     Indication: Febrile neutropenia
     Route: 058
     Dates: start: 20180725
  12. ACETAMINOPHEN [Concomitant]
     Active Substance: ACETAMINOPHEN
     Indication: Urinary tract infection
     Route: 042
     Dates: start: 20200415, end: 20200422
  13. HUMAN RED BLOOD CELL [Concomitant]
     Active Substance: HUMAN RED BLOOD CELL
     Indication: Urinary tract infection
     Route: 042
     Dates: start: 20200419, end: 20200419

REACTIONS (2)
  - Blood alkaline phosphatase increased [Recovering/Resolving]
  - Urostomy complication [Recovered/Resolved]

NARRATIVE: CASE EVENT DATE: 20191129
